FAERS Safety Report 20151790 (Version 1)
Quarter: 2021Q4

REPORT INFORMATION
  Report Type: Spontaneous
  Country: FR (occurrence: FR)
  Receive Date: 20211206
  Receipt Date: 20211206
  Transmission Date: 20220303
  Serious: Yes (Hospitalization)
  Sender: FDA-Public Use
  Company Number: None

PATIENT
  Age: 58 Year
  Sex: Female
  Weight: 69 kg

DRUGS (3)
  1. FLUOXETINE [Suspect]
     Active Substance: FLUOXETINE HYDROCHLORIDE
     Indication: Depression
     Dosage: 20 MILLIGRAM, QD (20MG/DAY)
     Route: 048
     Dates: start: 20210930
  2. ESOMEPRAZOLE [Concomitant]
     Active Substance: ESOMEPRAZOLE
     Indication: Depression
     Dosage: UNK
     Route: 048
  3. TEMESTA                            /00273201/ [Concomitant]
     Indication: Depression
     Dosage: UNK
     Route: 048

REACTIONS (7)
  - Palpitations [Recovering/Resolving]
  - Anxiety [Recovering/Resolving]
  - Gastrointestinal disorder [Recovering/Resolving]
  - Vertigo [Recovering/Resolving]
  - Parosmia [Recovering/Resolving]
  - Formication [Recovering/Resolving]
  - Feeling abnormal [Recovering/Resolving]

NARRATIVE: CASE EVENT DATE: 20210930
